FAERS Safety Report 12394486 (Version 2)
Quarter: 2016Q2

REPORT INFORMATION
  Report Type: Spontaneous
  Country: JP (occurrence: JP)
  Receive Date: 20160523
  Receipt Date: 20160603
  Transmission Date: 20160815
  Serious: Yes (Hospitalization, Other)
  Sender: FDA-Public Use
  Company Number: JP-GILEAD-2016-0211142AA

PATIENT
  Age: 74 Year
  Sex: Male
  Weight: 45 kg

DRUGS (6)
  1. SULPIRIDE [Concomitant]
     Active Substance: SULPIRIDE
     Dosage: 150 MG, UNK
  2. GASTER [Concomitant]
     Active Substance: FAMOTIDINE
     Dosage: 20 MG, UNK
  3. HARVONI [Suspect]
     Active Substance: LEDIPASVIR\SOFOSBUVIR
     Indication: HEPATIC CIRRHOSIS
     Dosage: 1 DF, UNK
     Route: 048
     Dates: start: 20160411
  4. MIDODRINE [Concomitant]
     Active Substance: MIDODRINE
     Dosage: 4 MG, UNK
  5. BERIZYM                            /01945301/ [Concomitant]
     Dosage: 1.5 G, UNK
  6. URSO [Concomitant]
     Active Substance: URSODIOL
     Indication: HEPATIC CIRRHOSIS
     Dosage: 300 MG, UNK

REACTIONS (2)
  - Cholangitis acute [Recovering/Resolving]
  - Bile duct stone [Unknown]

NARRATIVE: CASE EVENT DATE: 20160427
